FAERS Safety Report 14789862 (Version 2)
Quarter: 2018Q2

REPORT INFORMATION
  Report Type: Spontaneous
  Country: US (occurrence: US)
  Receive Date: 20180423
  Receipt Date: 20180424
  Transmission Date: 20180711
  Serious: No
  Sender: FDA-Public Use
  Company Number: US-PFIZER INC-2018160780

PATIENT
  Age: 5 Year
  Sex: Female
  Weight: 19.96 kg

DRUGS (2)
  1. QUILLICHEW ER [Suspect]
     Active Substance: METHYLPHENIDATE HYDROCHLORIDE
     Indication: ATTENTION DEFICIT/HYPERACTIVITY DISORDER
     Dosage: 20 MG, 1X/DAY (IN THE MORNING AT BREAKFAST)
     Dates: start: 20180405
  2. QUILLIVANT XR [Suspect]
     Active Substance: METHYLPHENIDATE HYDROCHLORIDE
     Indication: ATTENTION DEFICIT/HYPERACTIVITY DISORDER
     Dosage: 6 ML, 1X/DAY
     Route: 048
     Dates: start: 201412

REACTIONS (5)
  - Intentional product misuse [Unknown]
  - Decreased appetite [Unknown]
  - Weight decreased [Unknown]
  - Influenza [Unknown]
  - Underdose [Unknown]

NARRATIVE: CASE EVENT DATE: 201412
